FAERS Safety Report 10178815 (Version 1)
Quarter: 2014Q2

REPORT INFORMATION
  Report Type: Spontaneous
  Country: US (occurrence: None)
  Receive Date: 20140515
  Receipt Date: 20140515
  Transmission Date: 20141212
  Serious: Yes (Other)
  Sender: FDA-Public Use
  Company Number: 2014EXPUS00042

PATIENT
  Age: 29 Year
  Sex: Female
  Weight: 43.1 kg

DRUGS (2)
  1. EXPAREL (BUPIVACAINE) LIPOSOME INJECTABLE SUSPENSION, MG/ML [Suspect]
     Indication: POSTOPERATIVE ANALGESIA
     Dosage: UNKNOWN, 1X, INFILTRATION
     Dates: start: 20140425, end: 20140425
  2. NORCO [Suspect]
     Indication: PRODUCT USED FOR UNKNOWN INDICATION
     Dosage: UNKNOWN

REACTIONS (15)
  - Hypersensitivity [None]
  - Rash [None]
  - Urinary retention [None]
  - Pruritus [None]
  - Vision blurred [None]
  - Tremor [None]
  - Dysgeusia [None]
  - Dizziness [None]
  - Nausea [None]
  - Dysarthria [None]
  - Dehydration [None]
  - Injection site erythema [None]
  - Injection site reaction [None]
  - Blister [None]
  - Oedema [None]
